FAERS Safety Report 20380772 (Version 1)
Quarter: 2022Q1

REPORT INFORMATION
  Report Type: Spontaneous
  Country: JP (occurrence: JP)
  Receive Date: 20220127
  Receipt Date: 20220127
  Transmission Date: 20220423
  Serious: Yes (Other)
  Sender: FDA-Public Use
  Company Number: JP-MTPC-MTPC2021-0027355

PATIENT
  Age: 9 Decade
  Sex: Female

DRUGS (13)
  1. REMICADE [Suspect]
     Active Substance: INFLIXIMAB
     Indication: Rheumatoid arthritis
     Dosage: UNK
     Route: 042
     Dates: start: 201007
  2. REMICADE [Suspect]
     Active Substance: INFLIXIMAB
     Dosage: UNK
     Route: 042
  3. REMICADE [Suspect]
     Active Substance: INFLIXIMAB
     Dosage: UNK
     Route: 042
     Dates: end: 201506
  4. SIMPONI [Suspect]
     Active Substance: GOLIMUMAB
     Indication: Rheumatoid arthritis
     Dosage: 50 MILLIGRAM, QD
     Route: 058
     Dates: start: 201506
  5. SIMPONI [Suspect]
     Active Substance: GOLIMUMAB
     Dosage: 100 MILLIGRAM, QD
     Route: 058
     Dates: start: 201510
  6. SIMPONI [Suspect]
     Active Substance: GOLIMUMAB
  7. METHOTREXATE [Suspect]
     Active Substance: METHOTREXATE
     Dosage: 6 MILLIGRAM, 1/WEEK
     Route: 048
     Dates: start: 200905
  8. METHOTREXATE [Suspect]
     Active Substance: METHOTREXATE
     Dosage: 4 MILLIGRAM, 1/WEEK
     Route: 048
     Dates: start: 201406
  9. METHOTREXATE [Suspect]
     Active Substance: METHOTREXATE
     Dosage: 2 MILLIGRAM, 1/WEEK
     Route: 048
     Dates: start: 201408, end: 201506
  10. BUCILLAMINE [Concomitant]
     Active Substance: BUCILLAMINE
     Dosage: UNK
     Route: 065
     Dates: start: 200203
  11. PREDNISOLONE [Concomitant]
     Active Substance: PREDNISOLONE
     Dosage: UNK
     Route: 065
     Dates: start: 200704
  12. PREDNISOLONE [Concomitant]
     Active Substance: PREDNISOLONE
     Dosage: 3 MILLIGRAM, QD
     Route: 065
  13. SULFASALAZINE [Concomitant]
     Active Substance: SULFASALAZINE
     Dosage: UNK
     Route: 065
     Dates: end: 200203

REACTIONS (1)
  - Renal impairment [Unknown]

NARRATIVE: CASE EVENT DATE: 20140601
